FAERS Safety Report 23178757 (Version 1)
Quarter: 2023Q4

REPORT INFORMATION
  Report Type: Spontaneous
  Country: US (occurrence: None)
  Receive Date: 20231111
  Receipt Date: 20231111
  Transmission Date: 20240110
  Serious: Yes (unspecified)
  Sender: FDA-Public Use
  Company Number: None

PATIENT
  Age: 62 Year
  Sex: Female

DRUGS (1)
  1. SPRYCEL [Suspect]
     Active Substance: DASATINIB
     Dosage: 70MG QD
     Dates: start: 20211201

REACTIONS (2)
  - Pleural effusion [None]
  - Therapy interrupted [None]

NARRATIVE: CASE EVENT DATE: 20230201
